FAERS Safety Report 15774731 (Version 2)
Quarter: 2019Q1

REPORT INFORMATION
  Report Type: Spontaneous
  Country: US (occurrence: US)
  Receive Date: 20181230
  Receipt Date: 20190128
  Transmission Date: 20190417
  Serious: Yes (Death)
  Sender: FDA-Public Use
  Company Number: US-B.I. PHARMACEUTICALS,INC./RIDGEFIELD-2018-BI-061731

PATIENT
  Age: 72 Year
  Sex: Male

DRUGS (3)
  1. PLAVIX [Concomitant]
     Active Substance: CLOPIDOGREL BISULFATE
     Indication: PRODUCT USED FOR UNKNOWN INDICATION
     Route: 065
  2. SPIRIVA RESPIMAT [Suspect]
     Active Substance: TIOTROPIUM BROMIDE
     Indication: LUNG NEOPLASM MALIGNANT
     Dosage: FORM STRENGTH: 2.5 MCG; FORMULATION: INHALATION SPRAY? ?ACTION(S) TAKEN WITH PRODUCT: NOT REPORTED
     Route: 055
     Dates: start: 201809
  3. SPIRIVA RESPIMAT [Suspect]
     Active Substance: TIOTROPIUM BROMIDE
     Indication: CHRONIC OBSTRUCTIVE PULMONARY DISEASE

REACTIONS (3)
  - Malignant neoplasm progression [Fatal]
  - Metastases to central nervous system [Fatal]
  - Off label use [Unknown]

NARRATIVE: CASE EVENT DATE: 201809
